FAERS Safety Report 7191347-7 (Version None)
Quarter: 2010Q4

REPORT INFORMATION
  Report Type: 
  Country: None (occurrence: None)
  Receive Date: 20101223
  Receipt Date: 20100813
  Transmission Date: 20110411
  Serious: No
  Sender: FDA-Public Use
  Company Number: US-AMGEN-TCS431478

PATIENT

DRUGS (4)
  1. ENBREL [Suspect]
     Indication: RHEUMATOID ARTHRITIS
     Dosage: 50 MG, QWK
     Route: 058
     Dates: start: 20060501
  2. ENBREL [Suspect]
     Indication: PSORIASIS
  3. CYCLOBENZAPRINE HCL [Concomitant]
  4. MILNACIPRAN [Concomitant]

REACTIONS (10)
  - ANAEMIA [None]
  - CONTUSION [None]
  - DECREASED APPETITE [None]
  - FATIGUE [None]
  - FIBROMYALGIA [None]
  - GASTROINTESTINAL DISORDER [None]
  - GINGIVAL BLEEDING [None]
  - MEMORY IMPAIRMENT [None]
  - STRESS [None]
  - WEIGHT DECREASED [None]
